FAERS Safety Report 10397354 (Version 2)
Quarter: 2014Q3

REPORT INFORMATION
  Report Type: Spontaneous
  Country: US (occurrence: US)
  Receive Date: 20140820
  Receipt Date: 20140918
  Transmission Date: 20150326
  Serious: Yes (Other)
  Sender: FDA-Public Use
  Company Number: US-009507513-1408USA010177

PATIENT
  Sex: Female
  Weight: 136.69 kg

DRUGS (1)
  1. NUVARING [Suspect]
     Active Substance: ETHINYL ESTRADIOL\ETONOGESTREL
     Indication: CONTRACEPTION
     Dosage: INSERT FOR 3 WEEKS, THEN REMOVE; AFTER 1 WEEK, INSERT A NEW RING
     Route: 067
     Dates: start: 20050405

REACTIONS (17)
  - Dysmenorrhoea [Recovering/Resolving]
  - Asthma [Unknown]
  - Pulmonary embolism [Unknown]
  - Headache [Unknown]
  - Eye disorder [Unknown]
  - Eye pain [Unknown]
  - Pain in extremity [Unknown]
  - Deep vein thrombosis [Unknown]
  - Dyspnoea exertional [Recovering/Resolving]
  - Depression [Unknown]
  - Breast pain [Unknown]
  - Headache [Unknown]
  - Palpitations [Recovering/Resolving]
  - Costochondritis [Unknown]
  - Arthralgia [Unknown]
  - Maternal exposure before pregnancy [Unknown]
  - Cardiac disorder [Unknown]

NARRATIVE: CASE EVENT DATE: 200702
